FAERS Safety Report 10223389 (Version 1)
Quarter: 2014Q2

REPORT INFORMATION
  Report Type: Spontaneous
  Country: FR (occurrence: FR)
  Receive Date: 20140609
  Receipt Date: 20140609
  Transmission Date: 20141212
  Serious: Yes (Death, Hospitalization)
  Sender: FDA-Public Use
  Company Number: FR-ROCHE-1411759

PATIENT
  Age: 93 Year
  Sex: Female

DRUGS (7)
  1. ROCEPHINE [Suspect]
     Indication: PRODUCT USED FOR UNKNOWN INDICATION
     Route: 058
     Dates: start: 20140228
  2. COUMADINE [Suspect]
     Indication: THROMBOSIS
     Route: 048
     Dates: start: 20140225, end: 20140301
  3. CALCIPARINE [Suspect]
     Indication: THROMBOSIS
     Route: 058
     Dates: start: 20140221, end: 20140301
  4. KARDEGIC [Suspect]
     Indication: PRODUCT USED FOR UNKNOWN INDICATION
     Route: 048
     Dates: start: 20140224
  5. TRINITRINE [Suspect]
     Indication: PRODUCT USED FOR UNKNOWN INDICATION
     Route: 062
  6. LEVOTHYROX [Suspect]
     Indication: PRODUCT USED FOR UNKNOWN INDICATION
     Route: 048
     Dates: start: 20140224, end: 20140301
  7. CORDARONE [Suspect]
     Indication: PRODUCT USED FOR UNKNOWN INDICATION
     Route: 048
     Dates: start: 20140225

REACTIONS (1)
  - Gastrointestinal haemorrhage [Fatal]
